FAERS Safety Report 18710756 (Version 2)
Quarter: 2021Q1

REPORT INFORMATION
  Report Type: Spontaneous
  Country: US (occurrence: US)
  Receive Date: 20210107
  Receipt Date: 20210205
  Transmission Date: 20210419
  Serious: No
  Sender: FDA-Public Use
  Company Number: US-JNJFOC-20210102638

PATIENT
  Age: 15 Year
  Sex: Male

DRUGS (2)
  1. STELARA [Suspect]
     Active Substance: USTEKINUMAB
     Indication: CROHN^S DISEASE
     Route: 058
  2. STELARA [Suspect]
     Active Substance: USTEKINUMAB

REACTIONS (5)
  - Accidental exposure to product [Unknown]
  - Product dose omission issue [Unknown]
  - Product use issue [Unknown]
  - Drug delivery system malfunction [Unknown]
  - Off label use [Unknown]

NARRATIVE: CASE EVENT DATE: 20210102
